FAERS Safety Report 16600295 (Version 1)
Quarter: 2019Q3

REPORT INFORMATION
  Report Type: Spontaneous
  Country: FR (occurrence: FR)
  Receive Date: 20190720
  Receipt Date: 20190720
  Transmission Date: 20191004
  Serious: Yes (Congenital Anomaly, Other)
  Sender: FDA-Public Use
  Company Number: FR-AUROBINDO-AUR-APL-2019-041760

PATIENT

DRUGS (2)
  1. PAROXETINE. [Suspect]
     Active Substance: PAROXETINE
     Indication: AGORAPHOBIA
     Dosage: 40 MILLIGRAM, ONCE A DAY
     Route: 064
     Dates: start: 20180930, end: 20190520
  2. SERESTA [Suspect]
     Active Substance: OXAZEPAM
     Indication: AGORAPHOBIA
     Dosage: 10 MILLIGRAM, ONCE A DAY
     Route: 064
     Dates: start: 20180930, end: 20190520

REACTIONS (4)
  - Premature baby [Recovered/Resolved]
  - Respiratory distress [Recovered/Resolved]
  - Hypotonia [Recovered/Resolved]
  - Foetal exposure during pregnancy [Unknown]

NARRATIVE: CASE EVENT DATE: 20190520
